FAERS Safety Report 5781174-7 (Version None)
Quarter: 2008Q2

REPORT INFORMATION
  Report Type: 
  Country: None (occurrence: None)
  Receive Date: 20080618
  Receipt Date: 20080611
  Transmission Date: 20081010
  Serious: Yes (Hospitalization)
  Sender: FDA-Public Use
  Company Number: 2008BI009656

PATIENT
  Age: 76 Year
  Sex: Female
  Weight: 43.9989 kg

DRUGS (1)
  1. AVONEX [Suspect]
     Indication: MULTIPLE SCLEROSIS
     Dosage: 30 UG;QW ; IM
     Route: 030
     Dates: start: 19960330

REACTIONS (1)
  - CERVIX CARCINOMA [None]
